FAERS Safety Report 6688043-9 (Version None)
Quarter: 2010Q2

REPORT INFORMATION
  Report Type: 
  Country: None (occurrence: None)
  Receive Date: 20100420
  Receipt Date: 20100409
  Transmission Date: 20101027
  Serious: Yes (Other)
  Sender: FDA-Public Use
  Company Number: PHHY2010GB13748

PATIENT

DRUGS (1)
  1. EXJADE [Suspect]

REACTIONS (2)
  - DIABETES MELLITUS [None]
  - RENAL IMPAIRMENT [None]
